FAERS Safety Report 21637181 (Version 1)
Quarter: 2022Q4

REPORT INFORMATION
  Report Type: Report from Study
  Country: US (occurrence: US)
  Receive Date: 20221124
  Receipt Date: 20221124
  Transmission Date: 20230113
  Serious: No
  Sender: FDA-Public Use
  Company Number: US-ABBVIE-4211945

PATIENT

DRUGS (1)
  1. IMBRUVICA [Suspect]
     Active Substance: IBRUTINIB
     Indication: Chronic lymphocytic leukaemia
     Route: 048

REACTIONS (6)
  - Irritable bowel syndrome [Unknown]
  - Interspinous osteoarthritis [Unknown]
  - Arthritis [Unknown]
  - White blood cell count abnormal [Unknown]
  - Spinal stenosis [Unknown]
  - Foot deformity [Unknown]
